FAERS Safety Report 13910224 (Version 2)
Quarter: 2017Q4

REPORT INFORMATION
  Report Type: Spontaneous
  Country: DE (occurrence: DE)
  Receive Date: 20170828
  Receipt Date: 20171002
  Transmission Date: 20180320
  Serious: Yes (Life-Threatening, Hospitalization, Other)
  Sender: FDA-Public Use
  Company Number: DE-AMGEN-DEUSP2017130133

PATIENT
  Age: 79 Year
  Sex: Male
  Weight: 70 kg

DRUGS (23)
  1. L-THYROXIN [Concomitant]
     Active Substance: LEVOTHYROXINE SODIUM
     Dosage: 75 MUG, QD
  2. TAMSULOSIN [Concomitant]
     Active Substance: TAMSULOSIN
     Dosage: 0.4 MG, QD
  3. NOVAMINSULFON [Concomitant]
     Active Substance: METAMIZOLE
     Dosage: 30 DF, TID
  4. PULMICORT TURBUHALER [Concomitant]
     Active Substance: BUDESONIDE
     Dosage: 0.5 MG, BID
  5. IRBESARTAN. [Concomitant]
     Active Substance: IRBESARTAN
     Dosage: 75 MG, BID
  6. PANTOPRAZOLE [Concomitant]
     Active Substance: PANTOPRAZOLE
     Dosage: 20 TO 40 MG, QD
  7. REPATHA [Suspect]
     Active Substance: EVOLOCUMAB
     Indication: HYPERCHOLESTEROLAEMIA
     Dosage: 140 MG, Q2WK
     Route: 058
     Dates: start: 20161121, end: 20170301
  8. REKAWAN [Concomitant]
     Active Substance: POTASSIUM CHLORIDE
     Dosage: 2 DF (600 MG), BID
  9. DOXAZOSIN [Concomitant]
     Active Substance: DOXAZOSIN\DOXAZOSIN MESYLATE
     Dosage: 2 MG, QD
  10. TORASEMIDE [Concomitant]
     Active Substance: TORSEMIDE
     Dosage: 5 TO 10 MG, QD
  11. ASA [Concomitant]
     Active Substance: ASPIRIN
     Dosage: 100 MG, QD
  12. METOPROLOL. [Concomitant]
     Active Substance: METOPROLOL
     Dosage: 47.5 TO 100 MG, 1 AND 1/2
  13. XIPAMIDE [Concomitant]
     Active Substance: XIPAMIDE
     Dosage: 10 MG, QD TO 1/4 AND 1/4
  14. ALLOPURINOL. [Concomitant]
     Active Substance: ALLOPURINOL
     Dosage: 100 MG, QD
  15. CALCIUM [Concomitant]
     Active Substance: CALCIUM
     Dosage: 500 MG, QD
  16. SITAGLIPTIN [Concomitant]
     Active Substance: SITAGLIPTIN
     Dosage: 25 MG, QD
  17. NITROLINGUAL [Concomitant]
     Active Substance: NITROGLYCERIN
     Dosage: UNK UNK, AS NECESSARY
  18. CALCIVIT [Concomitant]
     Dosage: 400/600 UNK, QD
  19. REPATHA [Suspect]
     Active Substance: EVOLOCUMAB
     Indication: HYPERLIPIDAEMIA
     Dosage: UNK
     Route: 058
  20. ATOZET [Concomitant]
     Active Substance: ATORVASTATIN CALCIUM\EZETIMIBE
     Dosage: 10 MG, QD
  21. OMACOR [Concomitant]
     Active Substance: OMEGA-3-ACID ETHYL ESTERS
     Dosage: UNK UNK, TID
  22. FENISTIL [Concomitant]
     Active Substance: DIMETHINDENE
     Dosage: 6 DF, UNK
  23. ACC [Concomitant]
     Active Substance: ACETYLCYSTEINE
     Dosage: 600 MG, QD

REACTIONS (6)
  - Infection susceptibility increased [Recovered/Resolved]
  - Oedema peripheral [Recovering/Resolving]
  - Bronchitis [Recovering/Resolving]
  - Dyspnoea [Recovering/Resolving]
  - Myalgia [Recovering/Resolving]
  - Pneumonia [Recovered/Resolved]

NARRATIVE: CASE EVENT DATE: 20170210
